FAERS Safety Report 10272046 (Version 2)
Quarter: 2014Q3

REPORT INFORMATION
  Report Type: Report from Study
  Country: BD (occurrence: BD)
  Receive Date: 20140702
  Receipt Date: 20140702
  Transmission Date: 20150326
  Serious: Yes (Death)
  Sender: FDA-Public Use
  Company Number: PHHY2013BD044308

PATIENT
  Age: 87 Year
  Sex: Female
  Weight: 67 kg

DRUGS (3)
  1. ACLASTA [Suspect]
     Active Substance: ZOLEDRONIC ACID
     Indication: OSTEOPOROSIS
     Dosage: 5 MG IN 100ML SOLUTION
     Route: 042
     Dates: start: 20120503
  2. ACLASTA [Suspect]
     Active Substance: ZOLEDRONIC ACID
     Indication: JOINT INJURY
  3. INSULIN [Concomitant]
     Active Substance: INSULIN NOS
     Indication: DIABETES MELLITUS
     Dosage: UNK UKN, UNK

REACTIONS (2)
  - Cerebrovascular accident [Fatal]
  - Death [Fatal]

NARRATIVE: CASE EVENT DATE: 20130427
